FAERS Safety Report 5467794-8 (Version None)
Quarter: 2007Q3

REPORT INFORMATION
  Report Type: 
  Country: None (occurrence: None)
  Receive Date: 20070926
  Receipt Date: 20070920
  Transmission Date: 20080115
  Serious: Yes (Other)
  Sender: FDA-Public Use
  Company Number: PHEH2007US06131

PATIENT
  Age: 51 Year
  Sex: Female
  Weight: 68.027 kg

DRUGS (1)
  1. ZELNORM [Suspect]
     Indication: IRRITABLE BOWEL SYNDROME
     Dosage: 6 MG, BID
     Route: 048
     Dates: start: 20070322, end: 20070323

REACTIONS (6)
  - ABDOMINAL PAIN [None]
  - CHOLECYSTECTOMY [None]
  - CONCOMITANT DISEASE AGGRAVATED [None]
  - DIARRHOEA [None]
  - DYSPNOEA [None]
  - GALLBLADDER DISORDER [None]
